FAERS Safety Report 4801776-1 (Version None)
Quarter: 2005Q3

REPORT INFORMATION
  Report Type: 
  Country: None (occurrence: None)
  Receive Date: 20050929
  Receipt Date: 20050726
  Transmission Date: 20060218
  Serious: No
  Sender: FDA-Public Use
  Company Number: 05P-163-0306626-00

PATIENT
  Age: 48 Year
  Sex: Female
  Weight: 79.3795 kg

DRUGS (15)
  1. HUMIRA [Suspect]
     Indication: RHEUMATOID ARTHRITIS
     Dosage: 40 MG, 1IN 1 WK, SUBCUTANEOUS
     Route: 058
     Dates: start: 20050101, end: 20050301
  2. HUMIRA [Suspect]
     Indication: RHEUMATOID ARTHRITIS
     Dosage: 40 MG, 1IN 1 WK, SUBCUTANEOUS
     Route: 058
     Dates: start: 20050301
  3. RISEDRONATE SODIUM [Concomitant]
  4. ZETIA [Concomitant]
  5. RAMIPRIL [Concomitant]
  6. TOPROL-XL [Concomitant]
  7. GEMFIBROZIL [Concomitant]
  8. EFFEXOR XR [Concomitant]
  9. ZOLPIDEM TARTRATE [Concomitant]
  10. LEVOTHYROXINE SODIUM [Concomitant]
  11. ESOMEPRAZOLE [Concomitant]
  12. SULFASALAZINE [Concomitant]
  13. ATORVASTATIN CALCIUM [Concomitant]
  14. ASPIRIN [Concomitant]
  15. FENTANYL [Concomitant]

REACTIONS (1)
  - FATIGUE [None]
